FAERS Safety Report 21536835 (Version 2)
Quarter: 2022Q4

REPORT INFORMATION
  Report Type: Spontaneous
  Country: JP (occurrence: JP)
  Receive Date: 20221101
  Receipt Date: 20221116
  Transmission Date: 20230112
  Serious: Yes (Hospitalization)
  Sender: FDA-Public Use
  Company Number: JP-TEVA-2022-JP-2821857

PATIENT
  Age: 65 Year
  Sex: Female

DRUGS (5)
  1. ALLOPURINOL [Interacting]
     Active Substance: ALLOPURINOL
     Indication: Hyperuricaemia
     Route: 065
  2. AZATHIOPRINE [Interacting]
     Active Substance: AZATHIOPRINE
     Indication: Autoimmune hepatitis
     Dosage: 1 MG/KG BODY WEIGHT
     Route: 065
  3. URSODIOL [Concomitant]
     Active Substance: URSODIOL
     Indication: Autoimmune hepatitis
     Route: 065
  4. PREDNISOLONE [Concomitant]
     Active Substance: PREDNISOLONE
     Indication: Autoimmune hepatitis
     Dosage: 30 MILLIGRAM DAILY;
     Route: 065
  5. PREDNISOLONE [Concomitant]
     Active Substance: PREDNISOLONE
     Dosage: 6 MILLIGRAM DAILY;
     Route: 065

REACTIONS (5)
  - Myelosuppression [Recovering/Resolving]
  - Alopecia [Recovered/Resolved]
  - Mouth ulceration [Recovered/Resolved]
  - Purpura [Recovering/Resolving]
  - Drug interaction [Unknown]
